FAERS Safety Report 9605009 (Version 7)
Quarter: 2014Q1

REPORT INFORMATION
  Report Type: Spontaneous
  Country: IT (occurrence: IT)
  Receive Date: 20131008
  Receipt Date: 20140314
  Transmission Date: 20141002
  Serious: Yes (Other)
  Sender: FDA-Public Use
  Company Number: IT-PFIZER INC-2013280620

PATIENT
  Age: 78 Year
  Sex: Female

DRUGS (3)
  1. ALPRAZOLAM [Suspect]
     Indication: DEPRESSION
     Dosage: 1 MG, DAILY
     Route: 048
     Dates: start: 20130720, end: 20130813
  2. TRIAZOLAM [Suspect]
     Indication: DEPRESSION
     Dosage: 0.5 MG, DAILY
     Route: 048
     Dates: start: 20130720, end: 20130813
  3. CYMBALTA [Suspect]
     Indication: DEPRESSION
     Dosage: 60 MG, DAILY
     Route: 048
     Dates: start: 20130720, end: 20130813

REACTIONS (3)
  - Overdose [Recovering/Resolving]
  - Extrapyramidal disorder [Recovering/Resolving]
  - Dyskinesia [Recovering/Resolving]
